FAERS Safety Report 4345964-X (Version None)
Quarter: 2004Q2

REPORT INFORMATION
  Report Type: 
  Country: None (occurrence: None)
  Receive Date: 20040420
  Receipt Date: 20040413
  Transmission Date: 20050107
  Serious: Yes (Hospitalization, Other)
  Sender: FDA-Public Use
  Company Number: HQWYE442313APR04

PATIENT
  Age: 82 Year
  Sex: Male

DRUGS (2)
  1. CORDARONE [Suspect]
     Indication: ATRIAL FIBRILLATION
     Dosage: 200MG TABLET
     Route: 048
     Dates: start: 20040107, end: 20040114
  2. BISOPROLOL ^RATIOPHARM^ (BISOPROLOL) [Suspect]
     Dosage: 5 MG 1X PER 1 DAY
     Route: 048
     Dates: start: 20031115, end: 20040114

REACTIONS (10)
  - ASTHENIA [None]
  - ATRIAL FIBRILLATION [None]
  - ATRIOVENTRICULAR BLOCK FIRST DEGREE [None]
  - BLOOD THYROID STIMULATING HORMONE DECREASED [None]
  - BRADYCARDIA [None]
  - DRUG INTERACTION [None]
  - DYSPNOEA [None]
  - HEART RATE INCREASED [None]
  - INTERNATIONAL NORMALISED RATIO INCREASED [None]
  - OEDEMA PERIPHERAL [None]
